FAERS Safety Report 7087020-6 (Version None)
Quarter: 2010Q4

REPORT INFORMATION
  Report Type: 
  Country: None (occurrence: None)
  Receive Date: 20101106
  Receipt Date: 20101021
  Transmission Date: 20110411
  Serious: No
  Sender: FDA-Public Use
  Company Number: US-WYE-H18294710

PATIENT
  Sex: Male

DRUGS (2)
  1. ADVIL COLD AND SINUS [Suspect]
     Indication: SINUS HEADACHE
     Dosage: UNKNOWN
     Route: 048
  2. ADVIL CONGESTION RELIEF [Suspect]
     Indication: SINUS HEADACHE
     Dosage: UNKNOWN
     Route: 048

REACTIONS (1)
  - DRUG INEFFECTIVE [None]
